FAERS Safety Report 7354154-8 (Version None)
Quarter: 2011Q1

REPORT INFORMATION
  Report Type: 
  Country: None (occurrence: None)
  Receive Date: 20110316
  Receipt Date: 20110303
  Transmission Date: 20110831
  Serious: Yes (Death, Hospitalization)
  Sender: FDA-Public Use
  Company Number: DE-AMGEN-DEUCT2011007670

PATIENT
  Age: 80 Year
  Sex: Female

DRUGS (11)
  1. NITRENDIPINE [Concomitant]
     Dosage: 20 UNK, UNK
     Dates: start: 20051101
  2. TRAMAGIT [Concomitant]
     Indication: PRODUCT USED FOR UNKNOWN INDICATION
     Dosage: 100 UNK, UNK
     Dates: start: 20040901
  3. CAPTO COMP [Concomitant]
     Indication: PRODUCT USED FOR UNKNOWN INDICATION
     Dosage: 50/25 UNK, UNK
     Dates: start: 20050501
  4. BISOPROLOL [Concomitant]
     Indication: PRODUCT USED FOR UNKNOWN INDICATION
     Dosage: 5 UNK, UNK
     Dates: start: 20050501
  5. ETANERCEPT [Suspect]
     Indication: RHEUMATOID ARTHRITIS
     Dosage: 50-100 MG
     Dates: start: 20091002, end: 20091016
  6. PREDNISOLONE [Concomitant]
     Indication: PRODUCT USED FOR UNKNOWN INDICATION
     Dosage: 7.5 MG, QD
  7. COLECALCIFEROL [Concomitant]
     Dosage: UNK
     Dates: start: 20030101
  8. METHOTREXATE [Concomitant]
     Dosage: 5 MG, UNK
     Dates: start: 20090701
  9. PANTOZOL [Concomitant]
     Indication: PRODUCT USED FOR UNKNOWN INDICATION
     Dosage: 20 UNK, UNK
     Dates: start: 20080701
  10. ALLOPURINOL [Concomitant]
     Indication: PRODUCT USED FOR UNKNOWN INDICATION
     Dosage: 100 UNK, UNK
     Dates: start: 20081101
  11. FOSAVANCE [Concomitant]
     Indication: PRODUCT USED FOR UNKNOWN INDICATION
     Dosage: UNK
     Dates: start: 20070701

REACTIONS (3)
  - PULMONARY EMBOLISM [None]
  - SEPSIS [None]
  - PNEUMONIA [None]
